APPROVED DRUG PRODUCT: TRIMOX
Active Ingredient: AMOXICILLIN
Strength: 500MG
Dosage Form/Route: CAPSULE;ORAL
Application: A062152 | Product #002
Applicant: APOTHECON SUB BRISTOL MYERS SQUIBB CO
Approved: Approved Prior to Jan 1, 1982 | RLD: No | RS: No | Type: DISCN